FAERS Safety Report 8771488 (Version 3)
Quarter: 2012Q4

REPORT INFORMATION
  Report Type: Report from Study
  Country: AU (occurrence: AU)
  Receive Date: 20120906
  Receipt Date: 20121130
  Transmission Date: 20130627
  Serious: Yes (Hospitalization, Other)
  Sender: FDA-Public Use
  Company Number: AU-GLAXOSMITHKLINE-B0826890A

PATIENT
  Age: 47 Year
  Sex: Male
  Weight: 80 kg

DRUGS (6)
  1. REVOLADE [Suspect]
     Indication: HEPATITIS C
     Dosage: 50MG per day
     Dates: start: 20120322
  2. ENTECAVIR [Concomitant]
     Indication: HEPATITIS B
     Dosage: 8.5MG Per day
     Route: 048
     Dates: start: 201009
  3. PANTOPRAZOLE [Concomitant]
     Indication: GASTROOESOPHAGEAL REFLUX DISEASE
     Dosage: 40MG Per day
     Route: 048
     Dates: start: 201009
  4. TACROLIMUS [Concomitant]
     Indication: LIVER TRANSPLANT
     Dosage: 2MG Twice per day
     Route: 048
     Dates: start: 201009
  5. PREDNISOLONE [Concomitant]
     Indication: HAEMOLYSIS
     Dosage: 10MG Per day
     Route: 048
     Dates: start: 201208
  6. INSULIN [Concomitant]
     Indication: DIABETES MELLITUS
     Route: 058
     Dates: start: 201209

REACTIONS (1)
  - Haemolytic anaemia [Recovering/Resolving]
